FAERS Safety Report 4559895-3 (Version None)
Quarter: 2005Q1

REPORT INFORMATION
  Report Type: 
  Country: None (occurrence: None)
  Receive Date: 20050124
  Receipt Date: 20041008
  Transmission Date: 20050727
  Serious: Yes (Death, Other)
  Sender: FDA-Public Use
  Company Number: US-MERCK-0410USA01376

PATIENT
  Age: 75 Year
  Sex: Male
  Weight: 80 kg

DRUGS (4)
  1. VIOXX [Suspect]
     Indication: OSTEOARTHRITIS
     Route: 048
     Dates: start: 20011220, end: 20020131
  2. VIOXX [Suspect]
     Route: 048
     Dates: start: 20020101
  3. CARDURA [Concomitant]
     Indication: HYPERTENSION
     Route: 048
     Dates: start: 20011112, end: 20020301
  4. LIPITOR [Concomitant]
     Indication: HYPERLIPIDAEMIA
     Route: 065
     Dates: start: 20011108, end: 20020301

REACTIONS (2)
  - ACUTE MYOCARDIAL INFARCTION [None]
  - AORTIC ANEURYSM RUPTURE [None]
